FAERS Safety Report 13179509 (Version 2)
Quarter: 2017Q1

REPORT INFORMATION
  Report Type: Spontaneous
  Country: HU (occurrence: HU)
  Receive Date: 20170202
  Receipt Date: 20170209
  Transmission Date: 20170428
  Serious: Yes (Other)
  Sender: FDA-Public Use
  Company Number: HU-PFIZER INC-2017045851

PATIENT
  Age: 71 Year
  Sex: Male

DRUGS (8)
  1. CHINOTAL [Concomitant]
     Active Substance: PENTOXIFYLLINE
     Dosage: 400 MG, 2X/DAY
     Route: 048
     Dates: end: 20161217
  2. CITALOPRAM [Concomitant]
     Active Substance: CITALOPRAM HYDROBROMIDE
     Dosage: 10 MG, 1X/DAY
     Route: 048
     Dates: end: 20161217
  3. PANTOPRAZOLE [Concomitant]
     Active Substance: PANTOPRAZOLE SODIUM
     Dosage: 40 MG, 2X/DAY
     Route: 048
  4. COSOPT [Concomitant]
     Active Substance: DORZOLAMIDE HYDROCHLORIDE\TIMOLOL MALEATE
     Dosage: 2 GTT, DAILY
     Route: 047
  5. XALATAN [Concomitant]
     Active Substance: LATANOPROST
     Dosage: 1 GTT, 1X/DAY, EYE DROPS, SOLUTION
     Route: 047
  6. PROTIFAR [Concomitant]
     Dosage: 3 DF, DAILY
  7. TYGACIL [Suspect]
     Active Substance: TIGECYCLINE
     Indication: CLOSTRIDIUM DIFFICILE COLITIS
     Dosage: 50 MG, 2X/DAY
     Route: 041
     Dates: start: 20161214, end: 20161221
  8. ASPIRIN. [Concomitant]
     Active Substance: ASPIRIN
     Dosage: 100 MG, 1X/DAY
     Route: 048
     Dates: end: 20161217

REACTIONS (8)
  - Anaemia [Recovering/Resolving]
  - Prothrombin level decreased [Recovering/Resolving]
  - Platelet count decreased [Recovering/Resolving]
  - Blood fibrinogen decreased [Recovering/Resolving]
  - Fibrin D dimer increased [Recovering/Resolving]
  - Haematoma [Recovering/Resolving]
  - Activated partial thromboplastin time prolonged [Recovering/Resolving]
  - Thrombin time prolonged [Recovering/Resolving]

NARRATIVE: CASE EVENT DATE: 20161217
